FAERS Safety Report 8328049-7 (Version None)
Quarter: 2012Q2

REPORT INFORMATION
  Report Type: 
  Country: None (occurrence: None)
  Receive Date: 20120502
  Receipt Date: 20120424
  Transmission Date: 20120825
  Serious: Yes (Hospitalization)
  Sender: FDA-Public Use
  Company Number: PHEH2012US008701

PATIENT
  Sex: Female
  Weight: 137.3 kg

DRUGS (5)
  1. ALBUTEROL [Concomitant]
     Indication: ASTHMA
     Dosage: 1 DF, TID
     Dates: start: 20100201
  2. TOBI [Suspect]
     Dosage: 300 MG, UNK
     Dates: start: 20120110
  3. OMEPRAZOLE [Concomitant]
     Indication: GASTROOESOPHAGEAL REFLUX DISEASE
     Dosage: 20 MG, QD
     Route: 048
  4. TOBI [Suspect]
     Indication: BRONCHIECTASIS
     Dosage: 300 MG, VIA NEB IN A CYCLE OF 28 DAYS ON AND 28 DAYS OFF
     Dates: start: 20110630, end: 20111226
  5. MULTI-VITAMINS [Concomitant]
     Dosage: 1 DF, QD

REACTIONS (11)
  - BRONCHITIS [None]
  - BRONCHIECTASIS [None]
  - SPUTUM INCREASED [None]
  - DYSPNOEA [None]
  - PSEUDOMONAS INFECTION [None]
  - PAIN [None]
  - COUGH [None]
  - SPUTUM DISCOLOURED [None]
  - DISEASE PROGRESSION [None]
  - WHEEZING [None]
  - RESPIRATORY TRACT CONGESTION [None]
